FAERS Safety Report 12271485 (Version 1)
Quarter: 2016Q2

REPORT INFORMATION
  Report Type: Spontaneous
  Country: CH (occurrence: CH)
  Receive Date: 20160415
  Receipt Date: 20160415
  Transmission Date: 20160815
  Serious: Yes (Hospitalization)
  Sender: FDA-Public Use
  Company Number: PHHY2016CH047637

PATIENT
  Age: 53 Year
  Sex: Male
  Weight: 78 kg

DRUGS (11)
  1. EPHEDRINE. [Suspect]
     Active Substance: EPHEDRINE
     Indication: PROCEDURAL HYPOTENSION
     Dosage: 5 MG, UNK
     Route: 040
     Dates: start: 20160118, end: 20160118
  2. NOVALGIN [Suspect]
     Active Substance: METAMIZOLE SODIUM
     Indication: PRODUCT USED FOR UNKNOWN INDICATION
     Dosage: 3000 MG, UNK (ONE DOSE IN THE MORNING)
     Route: 048
     Dates: start: 20160113, end: 20160124
  3. PROPOFOL. [Suspect]
     Active Substance: PROPOFOL
     Indication: GENERAL ANAESTHESIA
     Route: 040
     Dates: start: 20160118, end: 20160118
  4. CLEXANE [Concomitant]
     Active Substance: ENOXAPARIN SODIUM
     Route: 058
     Dates: start: 20160113, end: 20160124
  5. ESMERON [Concomitant]
     Active Substance: ROCURONIUM BROMIDE
     Indication: PRODUCT USED FOR UNKNOWN INDICATION
     Route: 065
     Dates: start: 20160118, end: 20160118
  6. ZOFRAN [Suspect]
     Active Substance: ONDANSETRON HYDROCHLORIDE
     Indication: PRODUCT USED FOR UNKNOWN INDICATION
     Dosage: 4 MG, UNK
     Route: 065
     Dates: start: 20160118, end: 20160118
  7. NOREPINEPHRINE [Suspect]
     Active Substance: NOREPINEPHRINE\NOREPINEPHRINE BITARTRATE
     Indication: PROCEDURAL HYPOTENSION
     Dosage: 14 UG, UNK (FLOW 6 MCG/H FROM 10:10 AM, THEN 8 MCG/H FROM 10:15 AM)
     Route: 041
     Dates: start: 20160118, end: 20160118
  8. DAFALGAN [Concomitant]
     Active Substance: ACETAMINOPHEN
     Indication: PRODUCT USED FOR UNKNOWN INDICATION
     Dosage: 3 G, UNK (SINGLE DOSE TAKEN IN THE MORNING)
     Route: 048
     Dates: start: 20160113, end: 20160124
  9. FENTANYL. [Suspect]
     Active Substance: FENTANYL
     Indication: ANAESTHESIA PROCEDURE
     Dosage: 100 UG, UNK
     Route: 065
     Dates: start: 20160118, end: 20160118
  10. SEVOFLURANE. [Suspect]
     Active Substance: SEVOFLURANE
     Indication: GENERAL ANAESTHESIA
     Route: 055
     Dates: start: 20160118, end: 20160118
  11. ATROPIN SULFAT [Suspect]
     Active Substance: ATROPINE SULFATE
     Indication: PROCEDURAL HYPOTENSION
     Route: 040
     Dates: start: 20160118

REACTIONS (9)
  - Tachycardia [Recovered/Resolved]
  - Stress cardiomyopathy [Recovered/Resolved]
  - Haemodynamic instability [Recovered/Resolved]
  - Bradycardia [Recovered/Resolved]
  - Hypotension [Recovered/Resolved]
  - Electrocardiogram ST segment depression [Recovered/Resolved]
  - Troponin T increased [Unknown]
  - Hypertension [Recovered/Resolved]
  - Acute myocardial infarction [None]

NARRATIVE: CASE EVENT DATE: 20160118
